FAERS Safety Report 5089004-6 (Version None)
Quarter: 2006Q3

REPORT INFORMATION
  Report Type: 
  Country: None (occurrence: None)
  Receive Date: 20060825
  Receipt Date: 20060816
  Transmission Date: 20061208
  Serious: Yes (Other)
  Sender: FDA-Public Use
  Company Number: US-KINGPHARMUSA00001-K200601060

PATIENT
  Age: 42 Year
  Sex: Male

DRUGS (4)
  1. ALTACE [Suspect]
     Dosage: 6 MG, QD
     Route: 048
     Dates: start: 20001228
  2. ASPEGIC 325 [Concomitant]
     Indication: MYOCARDIAL INFARCTION
     Dosage: 100 MG, QD
     Route: 048
     Dates: start: 20001201
  3. VASTEN [Concomitant]
     Indication: MYOCARDIAL INFARCTION
     Dosage: 20 MG, QD
     Route: 048
     Dates: start: 20001201
  4. ISOPTIN [Concomitant]
     Indication: MYOCARDIAL INFARCTION
     Dosage: 120 MG, QD
     Route: 048
     Dates: start: 20001201

REACTIONS (1)
  - POLYCYTHAEMIA VERA [None]
